FAERS Safety Report 18659969 (Version 1)
Quarter: 2020Q4

REPORT INFORMATION
  Report Type: Spontaneous
  Country: US (occurrence: US)
  Receive Date: 20201224
  Receipt Date: 20201224
  Transmission Date: 20210114
  Serious: No
  Sender: FDA-Public Use
  Company Number: US-ELI_LILLY_AND_COMPANY-US202012002665

PATIENT
  Sex: Male

DRUGS (3)
  1. METOPROLOL. [Concomitant]
     Active Substance: METOPROLOL
     Indication: PRODUCT USED FOR UNKNOWN INDICATION
  2. TRADJENTA [Concomitant]
     Active Substance: LINAGLIPTIN
     Indication: PRODUCT USED FOR UNKNOWN INDICATION
  3. TRULICITY [Suspect]
     Active Substance: DULAGLUTIDE
     Indication: TYPE 2 DIABETES MELLITUS
     Dosage: 0.75 MG, UNKNOWN
     Route: 058
     Dates: start: 202011

REACTIONS (8)
  - Illness anxiety disorder [Unknown]
  - Discomfort [Recovering/Resolving]
  - Eructation [Recovering/Resolving]
  - Myalgia [Recovering/Resolving]
  - Chest pain [Recovering/Resolving]
  - Flatulence [Recovering/Resolving]
  - Abdominal pain upper [Recovering/Resolving]
  - Gallbladder disorder [Recovering/Resolving]
